FAERS Safety Report 22597953 (Version 3)
Quarter: 2023Q2

REPORT INFORMATION
  Report Type: Report from Study
  Country: US (occurrence: US)
  Receive Date: 20230614
  Receipt Date: 20230623
  Transmission Date: 20230721
  Serious: No
  Sender: FDA-Public Use
  Company Number: US-002147023-NVSC2023US131161

PATIENT
  Sex: Male

DRUGS (5)
  1. CLOBETASOL [Suspect]
     Active Substance: CLOBETASOL
     Indication: Psoriasis
     Dosage: UNK
     Route: 065
  2. COSENTYX [Suspect]
     Active Substance: SECUKINUMAB
     Indication: Product used for unknown indication
     Dosage: UNK
     Route: 065
  3. DOXYCYCLINE [Suspect]
     Active Substance: DOXYCYCLINE
     Indication: Psoriasis
     Dosage: UNK
     Route: 065
  4. FLUCONAZOLE [Suspect]
     Active Substance: FLUCONAZOLE
     Indication: Psoriasis
     Dosage: UNK
     Route: 065
  5. ACCUTANE [Suspect]
     Active Substance: ISOTRETINOIN
     Indication: Psoriasis
     Dosage: UNK UNK, TID
     Route: 065

REACTIONS (6)
  - Hidradenitis [Unknown]
  - Skin haemorrhage [Unknown]
  - Xerosis [Unknown]
  - Hyperhidrosis [Unknown]
  - Psoriasis [Unknown]
  - Drug ineffective [Unknown]
